FAERS Safety Report 23667612 (Version 2)
Quarter: 2024Q2

REPORT INFORMATION
  Report Type: Spontaneous
  Country: US (occurrence: None)
  Receive Date: 20240325
  Receipt Date: 20240524
  Transmission Date: 20240716
  Serious: Yes (Hospitalization)
  Sender: FDA-Public Use
  Company Number: 2024A068784

PATIENT
  Age: 99 Year
  Sex: Female

DRUGS (1)
  1. BYDUREON BCISE [Suspect]
     Active Substance: EXENATIDE

REACTIONS (2)
  - Pneumonia [Recovering/Resolving]
  - Product administered by wrong person [Recovered/Resolved]

NARRATIVE: CASE EVENT DATE: 20240222
